FAERS Safety Report 16735087 (Version 1)
Quarter: 2019Q3

REPORT INFORMATION
  Report Type: Spontaneous
  Country: US (occurrence: US)
  Receive Date: 20190823
  Receipt Date: 20190823
  Transmission Date: 20191005
  Serious: No
  Sender: FDA-Public Use
  Company Number: US-MIKART, LLC-2073575

PATIENT
  Sex: Female

DRUGS (1)
  1. CHLORZOXAZONE. [Suspect]
     Active Substance: CHLORZOXAZONE
     Route: 048
     Dates: start: 20190802

REACTIONS (1)
  - Rash [Unknown]
